FAERS Safety Report 5700861-X (Version None)
Quarter: 2008Q2

REPORT INFORMATION
  Report Type: 
  Country: None (occurrence: None)
  Receive Date: 20080407
  Receipt Date: 20080324
  Transmission Date: 20081010
  Serious: Yes (Life-Threatening, Other)
  Sender: FDA-Public Use
  Company Number: 2008AL001814

PATIENT
  Age: 55 Year
  Sex: Male

DRUGS (2)
  1. CARBAMAZEPINE [Suspect]
  2. TRICYCLIC ANTIDEPRESSANTS [Concomitant]

REACTIONS (11)
  - BRADYCARDIA [None]
  - HYPERTENSION [None]
  - NO THERAPEUTIC RESPONSE [None]
  - NODAL ARRHYTHMIA [None]
  - PROCEDURAL COMPLICATION [None]
  - PROCEDURAL HYPOTENSION [None]
  - QRS AXIS ABNORMAL [None]
  - REFLEXES ABNORMAL [None]
  - TRIGEMINAL NERVE DISORDER [None]
  - TRIGEMINAL NEURALGIA [None]
  - VENTRICULAR TACHYCARDIA [None]
